FAERS Safety Report 8795403 (Version 2)
Quarter: 2013Q1

REPORT INFORMATION
  Report Type: Spontaneous
  Country: CN (occurrence: CN)
  Receive Date: 20120917
  Receipt Date: 20130315
  Transmission Date: 20140127
  Serious: Yes (Other)
  Sender: FDA-Public Use
  Company Number: CN-JHP PHARMACEUTICALS, LLC-JHP201200467

PATIENT
  Age: 21 Year
  Sex: Male

DRUGS (1)
  1. KETALAR [Suspect]
     Indication: DRUG ABUSE

REACTIONS (6)
  - Liver function test abnormal [Unknown]
  - Ureteric stenosis [Unknown]
  - Hydronephrosis [Unknown]
  - Urinary tract disorder [Unknown]
  - Contracted bladder [None]
  - Hypertonic bladder [Unknown]
